FAERS Safety Report 10652442 (Version 1)
Quarter: 2014Q4

REPORT INFORMATION
  Report Type: Spontaneous
  Country: US (occurrence: None)
  Receive Date: 20141211
  Receipt Date: 20141211
  Transmission Date: 20150529
  Serious: Yes (Hospitalization)
  Sender: FDA-Public Use
  Company Number: 2014CT000214

PATIENT
  Sex: Female

DRUGS (1)
  1. KORLYM [Suspect]
     Active Substance: MIFEPRISTONE
     Indication: BLOOD CORTISOL INCREASED
     Route: 048
     Dates: start: 20141114, end: 20141125

REACTIONS (3)
  - Chills [None]
  - Pyrexia [None]
  - Rash maculo-papular [None]

NARRATIVE: CASE EVENT DATE: 20141125
